FAERS Safety Report 13139526 (Version 1)
Quarter: 2017Q1

REPORT INFORMATION
  Report Type: Spontaneous
  Country: US (occurrence: US)
  Receive Date: 20170123
  Receipt Date: 20170123
  Transmission Date: 20170428
  Serious: No
  Sender: FDA-Public Use
  Company Number: US-REGENERON PHARMACEUTICALS, INC.-2016-18299

PATIENT

DRUGS (1)
  1. EYLEA [Suspect]
     Active Substance: AFLIBERCEPT
     Indication: RETINAL VEIN OCCLUSION
     Dosage: FIRST INJECTION, OD
     Route: 031
     Dates: start: 20160609

REACTIONS (7)
  - Eyelid disorder [Unknown]
  - Eye swelling [Unknown]
  - Ocular hyperaemia [Unknown]
  - Fear of disease [Unknown]
  - Eye pain [Unknown]
  - Corneal disorder [Unknown]
  - Eye discharge [Unknown]

NARRATIVE: CASE EVENT DATE: 201606
